FAERS Safety Report 9529797 (Version 6)
Quarter: 2013Q4

REPORT INFORMATION
  Report Type: Spontaneous
  Country: FR (occurrence: FR)
  Receive Date: 20130917
  Receipt Date: 20131120
  Transmission Date: 20140711
  Serious: Yes (Death, Hospitalization)
  Sender: FDA-Public Use
  Company Number: FR-ROCHE-1270915

PATIENT
  Age: 41 Year
  Sex: Female

DRUGS (55)
  1. BACTRIM [Suspect]
     Indication: PRODUCT USED FOR UNKNOWN INDICATION
     Route: 041
     Dates: start: 20130724, end: 20130809
  2. CYMEVAN [Suspect]
     Indication: PRODUCT USED FOR UNKNOWN INDICATION
     Route: 042
     Dates: start: 20130726, end: 20130812
  3. FORTUM [Suspect]
     Indication: PRODUCT USED FOR UNKNOWN INDICATION
     Dosage: 1 G
     Route: 042
     Dates: start: 20130621, end: 20130809
  4. FLAGYL [Suspect]
     Indication: PRODUCT USED FOR UNKNOWN INDICATION
     Dosage: 500 MG
     Route: 048
     Dates: start: 20130712, end: 20130812
  5. ZELITREX [Suspect]
     Indication: PRODUCT USED FOR UNKNOWN INDICATION
     Route: 042
     Dates: start: 20130709, end: 20130812
  6. FOSCAVIR [Suspect]
     Indication: PRODUCT USED FOR UNKNOWN INDICATION
     Route: 042
     Dates: start: 20130808
  7. CLAIRYG [Suspect]
     Indication: PRODUCT USED FOR UNKNOWN INDICATION
     Route: 042
  8. GRANOCYTE [Suspect]
     Indication: PRODUCT USED FOR UNKNOWN INDICATION
     Route: 042
     Dates: start: 20130807
  9. HEPARINE SODIQUE [Suspect]
     Indication: PRODUCT USED FOR UNKNOWN INDICATION
     Route: 042
     Dates: start: 20130605
  10. INEXIUM [Suspect]
     Indication: PRODUCT USED FOR UNKNOWN INDICATION
     Dosage: 40 MG ONCE PER DAY
     Route: 042
     Dates: start: 20130709, end: 20130812
  11. SPASFON (FRANCE) [Suspect]
     Indication: PRODUCT USED FOR UNKNOWN INDICATION
     Route: 042
     Dates: start: 20130619
  12. DELURSAN [Suspect]
     Indication: PRODUCT USED FOR UNKNOWN INDICATION
     Route: 048
     Dates: start: 20130605, end: 20130708
  13. DEFIBROTIDE [Suspect]
     Indication: PRODUCT USED FOR UNKNOWN INDICATION
     Route: 042
     Dates: start: 20130605, end: 20130812
  14. LARGACTIL [Suspect]
     Indication: PRODUCT USED FOR UNKNOWN INDICATION
     Route: 042
     Dates: start: 20130619, end: 20130709
  15. TRANXENE [Suspect]
     Indication: PRODUCT USED FOR UNKNOWN INDICATION
     Dosage: AS REQUIRED
     Route: 048
     Dates: start: 20130622, end: 20130709
  16. OXYNORM [Suspect]
     Indication: PRODUCT USED FOR UNKNOWN INDICATION
     Route: 042
     Dates: start: 20130619
  17. EXACYL [Suspect]
     Indication: PRODUCT USED FOR UNKNOWN INDICATION
     Route: 042
     Dates: start: 20130727, end: 20130812
  18. PERFALGAN [Suspect]
     Indication: PRODUCT USED FOR UNKNOWN INDICATION
     Route: 042
     Dates: start: 20130710, end: 20130812
  19. SOLU-MEDROL [Suspect]
     Indication: PRODUCT USED FOR UNKNOWN INDICATION
     Route: 042
     Dates: start: 20130709
  20. DROLEPTAN [Suspect]
     Indication: PRODUCT USED FOR UNKNOWN INDICATION
     Route: 042
     Dates: start: 20130712, end: 20130717
  21. ULTIVA [Suspect]
     Indication: PRODUCT USED FOR UNKNOWN INDICATION
     Route: 042
     Dates: start: 20130714, end: 20130717
  22. ATARAX (FRANCE) [Suspect]
     Indication: PRODUCT USED FOR UNKNOWN INDICATION
     Dosage: 100 MG
     Route: 048
     Dates: start: 20130714
  23. LASILIX [Suspect]
     Indication: PRODUCT USED FOR UNKNOWN INDICATION
     Route: 042
     Dates: start: 20130716, end: 20130809
  24. SEROPLEX [Suspect]
     Indication: PRODUCT USED FOR UNKNOWN INDICATION
     Dosage: DOSE INCREASED ON UNSPECIFIED DATE
     Route: 048
     Dates: start: 20130721
  25. CERIS [Suspect]
     Indication: PRODUCT USED FOR UNKNOWN INDICATION
     Dosage: 20 MG
     Route: 048
     Dates: start: 20130807
  26. NOCTAMIDE [Suspect]
     Indication: PRODUCT USED FOR UNKNOWN INDICATION
     Dosage: 2 MG
     Route: 048
     Dates: start: 20130808
  27. NOCTAMIDE [Suspect]
     Route: 048
     Dates: start: 20130605, end: 20130708
  28. GENTAMICIN [Suspect]
     Indication: PRODUCT USED FOR UNKNOWN INDICATION
     Route: 042
     Dates: start: 20130809, end: 20130811
  29. NOXAFIL [Suspect]
     Indication: PRODUCT USED FOR UNKNOWN INDICATION
     Route: 048
     Dates: start: 20130619, end: 20130708
  30. CANCIDAS [Suspect]
     Indication: PRODUCT USED FOR UNKNOWN INDICATION
     Route: 042
     Dates: start: 20130709, end: 20130709
  31. FOLINIC ACID [Suspect]
     Indication: PRODUCT USED FOR UNKNOWN INDICATION
     Route: 042
     Dates: start: 20130724, end: 20130809
  32. AMBISOME [Suspect]
     Indication: PRODUCT USED FOR UNKNOWN INDICATION
     Route: 042
     Dates: start: 20130709, end: 20130811
  33. ENDOXAN [Concomitant]
  34. BUSULFEX [Concomitant]
  35. METHOTREXATE [Concomitant]
     Route: 065
     Dates: start: 20130605, end: 20130619
  36. VANCOMYCINE [Concomitant]
     Route: 065
     Dates: start: 20130605, end: 20130709
  37. CIFLOX (FRANCE) [Concomitant]
     Route: 065
     Dates: start: 20130621, end: 20130712
  38. TARGOCID [Concomitant]
     Route: 065
     Dates: start: 20130710
  39. MYCOSTATINE [Concomitant]
     Dosage: 2 VIAL
     Route: 065
     Dates: start: 20130605, end: 20130619
  40. TRIFLUCAN [Concomitant]
     Route: 065
     Dates: start: 20130605, end: 20130618
  41. ZOVIRAX [Concomitant]
     Route: 065
     Dates: start: 20130605, end: 20130709
  42. ELVORINE [Concomitant]
     Route: 065
     Dates: start: 20130605, end: 20130619
  43. SANDIMMUN [Concomitant]
     Route: 065
     Dates: start: 20130614, end: 20130708
  44. MOPRAL (FRANCE) [Concomitant]
     Route: 065
     Dates: start: 20130605, end: 20130618
  45. OGASTORO [Concomitant]
     Route: 065
     Dates: start: 20130619, end: 20130708
  46. GELOX [Concomitant]
     Route: 065
     Dates: start: 20130605, end: 20130708
  47. SMECTA (FRANCE) [Concomitant]
     Route: 065
     Dates: start: 20130620, end: 20130708
  48. LUTERAN [Concomitant]
     Route: 065
     Dates: start: 20130605, end: 20130708
  49. ZOPHREN [Concomitant]
     Dosage: ONE TABLET PER DAY
     Route: 065
     Dates: start: 20130605, end: 20130708
  50. PRIMPERAN (FRANCE) [Concomitant]
     Route: 065
     Dates: start: 20130620, end: 20130709
  51. ACUPAN [Concomitant]
     Dosage: IF NEEDED
     Route: 065
     Dates: start: 20130620, end: 20130709
  52. TIORFAN [Concomitant]
     Route: 065
     Dates: start: 20130622, end: 20130708
  53. LEVOCARNIL [Concomitant]
     Route: 065
     Dates: start: 20130709, end: 20130714
  54. COLISTINE [Concomitant]
     Route: 065
     Dates: start: 20130605, end: 20130708
  55. LEXOMIL [Concomitant]
     Route: 065
     Dates: start: 20130605, end: 20130708

REACTIONS (12)
  - Toxic epidermal necrolysis [Fatal]
  - Hepatitis fulminant [Fatal]
  - Renal failure acute [Fatal]
  - Multi-organ failure [Fatal]
  - Oedema [Not Recovered/Not Resolved]
  - Blister [Not Recovered/Not Resolved]
  - Skin lesion [Not Recovered/Not Resolved]
  - Graft versus host disease in intestine [Not Recovered/Not Resolved]
  - Skin erosion [Not Recovered/Not Resolved]
  - Haematuria [Not Recovered/Not Resolved]
  - Mucosal erosion [Not Recovered/Not Resolved]
  - Eschar [Not Recovered/Not Resolved]
